FAERS Safety Report 7866765-1 (Version None)
Quarter: 2011Q4

REPORT INFORMATION
  Report Type: 
  Country: None (occurrence: None)
  Receive Date: 20111028
  Receipt Date: 20110815
  Transmission Date: 20120403
  Serious: No
  Sender: FDA-Public Use
  Company Number: US-GLAXOSMITHKLINE-A0941092A

PATIENT
  Age: 69 Year
  Sex: Male

DRUGS (7)
  1. ADVAIR DISKUS 100/50 [Suspect]
     Indication: CHRONIC OBSTRUCTIVE PULMONARY DISEASE
     Dosage: 1PUFF PER DAY
     Route: 055
     Dates: start: 20100101
  2. ZOLOFT [Concomitant]
  3. COUMADIN [Concomitant]
  4. ATIVAN [Concomitant]
  5. RISPERDAL [Concomitant]
  6. OXYGEN [Concomitant]
  7. AMLODIPINE [Concomitant]

REACTIONS (5)
  - PRODUCT QUALITY ISSUE [None]
  - DYSPNOEA [None]
  - DRUG INEFFECTIVE [None]
  - DRUG ADMINISTRATION ERROR [None]
  - CHEST DISCOMFORT [None]
